FAERS Safety Report 12624757 (Version 1)
Quarter: 2016Q3

REPORT INFORMATION
  Report Type: Spontaneous
  Country: US (occurrence: None)
  Receive Date: 20160804
  Receipt Date: 20160804
  Transmission Date: 20161109
  Serious: Yes (Disabling)
  Sender: FDA-Public Use
  Company Number: None

PATIENT
  Age: 38 Year
  Sex: Male
  Weight: 127.01 kg

DRUGS (12)
  1. LISINOPRIL. [Concomitant]
     Active Substance: LISINOPRIL
  2. LORAZEPAM. [Concomitant]
     Active Substance: LORAZEPAM
  3. LITHOBID [Concomitant]
     Active Substance: LITHIUM CARBONATE
  4. PROZAC [Concomitant]
     Active Substance: FLUOXETINE HYDROCHLORIDE
  5. EFFEXOR XR [Concomitant]
     Active Substance: VENLAFAXINE HYDROCHLORIDE
  6. TOPROL XL [Concomitant]
     Active Substance: METOPROLOL SUCCINATE
  7. LATUDA [Suspect]
     Active Substance: LURASIDONE HYDROCHLORIDE
     Indication: ANTIDEPRESSANT THERAPY
     Route: 048
     Dates: start: 20160306, end: 20160323
  8. ATORVASTATIN [Concomitant]
     Active Substance: ATORVASTATIN
  9. DEXTROAMPHETAMINE. [Concomitant]
     Active Substance: DEXTROAMPHETAMINE
  10. BELSOMRA [Concomitant]
     Active Substance: SUVOREXANT
  11. OMEPRAZOLE. [Concomitant]
     Active Substance: OMEPRAZOLE
  12. L-METHYLFOLATE [Concomitant]

REACTIONS (3)
  - Dysphagia [None]
  - Tic [None]
  - Dysphonia [None]

NARRATIVE: CASE EVENT DATE: 20160308
